FAERS Safety Report 11488524 (Version 1)
Quarter: 2015Q3

REPORT INFORMATION
  Report Type: Spontaneous
  Country: US (occurrence: US)
  Receive Date: 20150910
  Receipt Date: 20150910
  Transmission Date: 20151125
  Serious: Yes (Other)
  Sender: FDA-Public Use
  Company Number: US-ROCHE-1470424

PATIENT
  Age: 44 Year
  Sex: Male

DRUGS (13)
  1. PEG-INTERFERON ALFA 2A [Suspect]
     Active Substance: PEGINTERFERON ALFA-2A
     Route: 058
     Dates: start: 20110510
  2. TELAPREVIR [Suspect]
     Active Substance: TELAPREVIR
     Indication: HEPATITIS C
     Dosage: FORTH COURSE OF HCV THERAPY
     Route: 065
     Dates: start: 20110510
  3. RIBAVIRIN. [Suspect]
     Active Substance: RIBAVIRIN
     Indication: HEPATITIS C
     Dosage: SECOND COURSE OF HCV THERAPY
     Route: 065
     Dates: start: 20080915, end: 20081219
  4. ATAZANAVIR [Concomitant]
     Active Substance: ATAZANAVIR
     Indication: HIV INFECTION
     Route: 065
  5. PEG-INTERFERON ALFA 2A [Suspect]
     Active Substance: PEGINTERFERON ALFA-2A
     Indication: HEPATITIS C
     Dosage: FIRST COURSE OF HCV THERAPY
     Route: 065
     Dates: start: 20030624, end: 20040205
  6. RIBAVIRIN. [Suspect]
     Active Substance: RIBAVIRIN
     Dosage: FORTH COURSE OF HCV THERAPY
     Route: 065
     Dates: start: 20111004, end: 20120926
  7. PEG-INTERFERON ALFA 2A [Suspect]
     Active Substance: PEGINTERFERON ALFA-2A
     Dosage: FOURTH COURSE OF HCV THERAPY
     Route: 065
     Dates: start: 20111004, end: 20120926
  8. CONSENSUS INTERFERON [Suspect]
     Active Substance: INTERFERON ALFACON-1
     Indication: HEPATITIS C
     Dosage: SECOND COURSE OF HCV THERAPY
     Route: 065
     Dates: start: 20080915, end: 20081219
  9. PEG-INTERFERON ALFA 2A [Suspect]
     Active Substance: PEGINTERFERON ALFA-2A
     Dosage: THIRD COURSE OF HCV THERAPY
     Route: 065
     Dates: start: 20090625, end: 20091005
  10. RITONAVIR. [Concomitant]
     Active Substance: RITONAVIR
     Indication: HIV INFECTION
     Route: 065
  11. RIBAVIRIN. [Suspect]
     Active Substance: RIBAVIRIN
     Route: 065
     Dates: start: 20110510
  12. RIBAVIRIN. [Suspect]
     Active Substance: RIBAVIRIN
     Dosage: THIRD COURSE OF HCV THERAPY
     Route: 065
     Dates: start: 20090625, end: 20091005
  13. TELAPREVIR [Suspect]
     Active Substance: TELAPREVIR
     Dosage: FORTH COURSE OF HCV THERAPY
     Route: 065
     Dates: start: 20111004, end: 20120926

REACTIONS (7)
  - Anaemia [Unknown]
  - Depression [Unknown]
  - Thrombocytopenia [Unknown]
  - Fatigue [Unknown]
  - Cough [Unknown]
  - Weight decreased [Unknown]
  - Wheezing [Unknown]
